FAERS Safety Report 5530146-6 (Version None)
Quarter: 2007Q4

REPORT INFORMATION
  Report Type: 
  Country: None (occurrence: None)
  Receive Date: 20071130
  Receipt Date: 20071126
  Transmission Date: 20080405
  Serious: Yes (Hospitalization)
  Sender: FDA-Public Use
  Company Number: US-JNJFOC-20071107680

PATIENT
  Age: 28 Year
  Sex: Male

DRUGS (2)
  1. ACETAMINOPHEN [Suspect]
     Route: 048
  2. ACETAMINOPHEN [Suspect]
     Indication: DRUG USE FOR UNKNOWN INDICATION
     Dosage: LARGE DOSE
     Route: 048

REACTIONS (6)
  - ACUTE HEPATIC FAILURE [None]
  - INTENTIONAL OVERDOSE [None]
  - RENAL FAILURE ACUTE [None]
  - RESPIRATORY DISTRESS [None]
  - RHABDOMYOLYSIS [None]
  - SUICIDE ATTEMPT [None]
